FAERS Safety Report 10932743 (Version 1)
Quarter: 2015Q1

REPORT INFORMATION
  Report Type: Spontaneous
  Country: US (occurrence: None)
  Receive Date: 20150318
  Receipt Date: 20150318
  Transmission Date: 20150721
  Serious: Yes (Other)
  Sender: FDA-Public Use
  Company Number: 001881674A

PATIENT
  Age: 13 Year
  Sex: Female

DRUGS (5)
  1. PROACTIV PLUS COMPLEXION PERFECTING HYDRATOR [Suspect]
     Active Substance: SALICYLIC ACID
     Indication: ACNE
     Dosage: DERMAL BID
     Dates: start: 20150204, end: 20150206
  2. PROACTIVPLUS SKIN SMOOTHING EXFOLIATOR [Suspect]
     Active Substance: BENZOYL PEROXIDE
     Indication: ACNE
     Dosage: DERMAL BID
     Dates: start: 20150204, end: 20150206
  3. PROACTIV PLUS EMERGENCY BLEMISH RELIEF [Suspect]
     Active Substance: BENZOYL PEROXIDE
     Indication: ACNE
     Dosage: DERMAL BID
     Dates: start: 20150204, end: 20150206
  4. PROACTIV PLUS PORE TARGETING TREATMENT [Suspect]
     Active Substance: BENZOYL PEROXIDE
     Indication: ACNE
     Dosage: DERMAL BID?
     Dates: start: 20150204, end: 20150206
  5. PROACTIV PLUS CLEANSING BODY BAR [Suspect]
     Active Substance: SALICYLIC ACID
     Indication: ACNE
     Dosage: DERMAL BID
     Dates: start: 20150204, end: 20150206

REACTIONS (4)
  - Urticaria [None]
  - Throat irritation [None]
  - Rash pruritic [None]
  - Eye swelling [None]

NARRATIVE: CASE EVENT DATE: 20150206
